FAERS Safety Report 12969580 (Version 1)
Quarter: 2016Q4

REPORT INFORMATION
  Report Type: Report from Study
  Country: US (occurrence: US)
  Receive Date: 20161123
  Receipt Date: 20161123
  Transmission Date: 20170207
  Serious: Yes (Hospitalization)
  Sender: FDA-Public Use
  Company Number: US-ACTELION-A-US2016-146026

PATIENT
  Age: 64 Year
  Sex: Male

DRUGS (2)
  1. ADCIRCA [Concomitant]
     Active Substance: TADALAFIL
  2. VENTAVIS [Suspect]
     Active Substance: ILOPROST
     Indication: PULMONARY ARTERIAL HYPERTENSION
     Dosage: 5 MCG, 6-9 TIMES
     Route: 055
     Dates: start: 20151111

REACTIONS (9)
  - Atrial fibrillation [Unknown]
  - Cellulitis [Unknown]
  - Dialysis [Unknown]
  - Renal failure [Unknown]
  - Arteriovenous fistula [Unknown]
  - Transfusion [Unknown]
  - Anaemia [Unknown]
  - Weight decreased [Unknown]
  - Abdominal distension [Unknown]
